FAERS Safety Report 11308819 (Version 1)
Quarter: 2015Q3

REPORT INFORMATION
  Report Type: Spontaneous
  Country: NZ (occurrence: NZ)
  Receive Date: 20150724
  Receipt Date: 20150724
  Transmission Date: 20151125
  Serious: Yes (Other)
  Sender: FDA-Public Use
  Company Number: NZ-ELI_LILLY_AND_COMPANY-NZ201507004416

PATIENT
  Sex: Male

DRUGS (1)
  1. ZYPREXA RELPREVV [Suspect]
     Active Substance: OLANZAPINE PAMOATE
     Indication: PRODUCT USED FOR UNKNOWN INDICATION
     Dosage: UNK, UNKNOWN
     Route: 065

REACTIONS (7)
  - Feeling drunk [Unknown]
  - Feeling abnormal [Unknown]
  - Agitation [Unknown]
  - Weight decreased [Unknown]
  - Gait disturbance [Unknown]
  - Sedation [Unknown]
  - Confusional state [Unknown]

NARRATIVE: CASE EVENT DATE: 20150224
